FAERS Safety Report 7796122-8 (Version None)
Quarter: 2011Q4

REPORT INFORMATION
  Report Type: 
  Country: None (occurrence: None)
  Receive Date: 20111004
  Receipt Date: 20110928
  Transmission Date: 20120403
  Serious: Yes (Life-Threatening)
  Sender: FDA-Public Use
  Company Number: US-CELGENEUS-163-21880-11093578

PATIENT
  Sex: Female

DRUGS (9)
  1. FERROUS FUMARATE [Concomitant]
     Route: 065
  2. VITAMIN B COMPLEX CAP [Concomitant]
     Route: 065
  3. REVLIMID [Suspect]
     Dosage: 15 MILLIGRAM
     Route: 048
     Dates: start: 20110414
  4. FUROSEMIDE [Concomitant]
     Route: 065
  5. DEXAMETHASONE [Concomitant]
     Route: 065
  6. ASPIRIN [Concomitant]
     Route: 065
  7. DOCUSATE SODIUM [Concomitant]
     Route: 065
  8. CALCIUM + D + K [Concomitant]
     Route: 065
  9. ATENOLOL [Concomitant]
     Route: 065

REACTIONS (2)
  - MULTIPLE MYELOMA [None]
  - PAIN [None]
